FAERS Safety Report 16824826 (Version 1)
Quarter: 2019Q3

REPORT INFORMATION
  Report Type: Spontaneous
  Country: GB (occurrence: GB)
  Receive Date: 20190918
  Receipt Date: 20190918
  Transmission Date: 20191005
  Serious: Yes (Other)
  Sender: FDA-Public Use
  Company Number: GB-ASTRAZENECA-2019SF29892

PATIENT
  Age: 64 Year
  Sex: Male
  Weight: 122 kg

DRUGS (39)
  1. MOVICOL [Concomitant]
     Active Substance: POLYETHYLENE GLYCOL 3350\POTASSIUM CHLORIDE\SODIUM BICARBONATE\SODIUM CHLORIDE
  2. BISOPROLOL FUMARATE. [Concomitant]
     Active Substance: BISOPROLOL FUMARATE
  3. POTASSIUM CHLORIDE. [Concomitant]
     Active Substance: POTASSIUM CHLORIDE
  4. FUROSEMIDE. [Concomitant]
     Active Substance: FUROSEMIDE
  5. RAMIPRIL. [Concomitant]
     Active Substance: RAMIPRIL
  6. TICAGRELOR. [Suspect]
     Active Substance: TICAGRELOR
     Indication: ACUTE MYOCARDIAL INFARCTION
     Route: 048
     Dates: start: 20190620, end: 20190703
  7. DALTEPARIN SODIUM [Concomitant]
     Active Substance: DALTEPARIN SODIUM
  8. ENOXIMONE [Concomitant]
     Active Substance: ENOXIMONE
  9. CISATRACURIUM BESILATE [Concomitant]
     Active Substance: CISATRACURIUM BESYLATE
  10. MIDAZOLAM [Concomitant]
     Active Substance: MIDAZOLAM HYDROCHLORIDE
  11. FOLIC ACID. [Concomitant]
     Active Substance: FOLIC ACID
  12. CARBOCISTEINE [Concomitant]
     Active Substance: CARBOCYSTEINE
  13. ROCURONIUM [Concomitant]
     Active Substance: ROCURONIUM BROMIDE
  14. SALBUTAMOL [Concomitant]
     Active Substance: ALBUTEROL
  15. CHLORHEXIDINE [Concomitant]
     Active Substance: CHLORHEXIDINE
  16. LISINOPRIL ANHYDROUS [Concomitant]
     Active Substance: LISINOPRIL
  17. FLEET READY TO USE ENEMA [Concomitant]
  18. OMEPRAZOLE. [Concomitant]
     Active Substance: OMEPRAZOLE
  19. CO-AMOXICLAV [Concomitant]
     Active Substance: AMOXICILLIN\CLAVULANATE POTASSIUM
  20. PARACETAMOL [Concomitant]
     Active Substance: ACETAMINOPHEN
  21. MEROPENEM. [Concomitant]
     Active Substance: MEROPENEM
  22. PROPOFOL. [Concomitant]
     Active Substance: PROPOFOL
  23. ATORVASTATIN [Concomitant]
     Active Substance: ATORVASTATIN
  24. DOCUSATE [Concomitant]
     Active Substance: DOCUSATE
  25. INSULIN [Concomitant]
     Active Substance: INSULIN NOS
  26. MAGNESIUM [Concomitant]
     Active Substance: MAGNESIUM
  27. DOXYCYCLINE. [Concomitant]
     Active Substance: DOXYCYCLINE
  28. PHOSPHATE SANDOZ EFFERVESCENT [Concomitant]
  29. NOREPINEPHRINE. [Concomitant]
     Active Substance: NOREPINEPHRINE
  30. AMIODARONE [Concomitant]
     Active Substance: AMIODARONE
  31. REMIFENTANIL HYDROCHLORIDE. [Concomitant]
     Active Substance: REMIFENTANIL HYDROCHLORIDE
  32. METOCLOPRAMIDE. [Concomitant]
     Active Substance: METOCLOPRAMIDE
  33. OCTENISAN [Concomitant]
  34. FRESENIUS KABI PIPERACILLIN AND TAZOBACTAM [Concomitant]
  35. COCODAMOL [Concomitant]
     Active Substance: ACETAMINOPHEN\CODEINE PHOSPHATE
  36. ALFENTANIL. [Concomitant]
     Active Substance: ALFENTANIL
  37. ACETYLSALICYLIC ACID [Concomitant]
     Active Substance: ASPIRIN
  38. CLONIDINE. [Concomitant]
     Active Substance: CLONIDINE
  39. ABASAGLAR [Concomitant]
     Active Substance: INSULIN GLARGINE

REACTIONS (1)
  - Tardive dyskinesia [Recovered/Resolved]
